FAERS Safety Report 8329500-9 (Version None)
Quarter: 2012Q2

REPORT INFORMATION
  Report Type: 
  Country: None (occurrence: None)
  Receive Date: 20120502
  Receipt Date: 20120417
  Transmission Date: 20120825
  Serious: Yes (Hospitalization, Other)
  Sender: FDA-Public Use
  Company Number: BE-ROCHE-1039462

PATIENT
  Sex: Female
  Weight: 69 kg

DRUGS (3)
  1. PEGASYS [Suspect]
     Indication: HEPATITIS C
     Route: 058
     Dates: start: 20110822, end: 20120130
  2. COPEGUS [Suspect]
     Indication: HEPATITIS C
     Route: 048
     Dates: start: 20110822, end: 20120206
  3. BLINDED TMC435 (NS3/4A PROTEASE INHIBITOR) [Suspect]
     Indication: HEPATITIS C
     Dosage: FREQUENCY: QD
     Route: 048
     Dates: start: 20110822, end: 20111110

REACTIONS (5)
  - VOMITING [None]
  - PRESYNCOPE [None]
  - ALANINE AMINOTRANSFERASE INCREASED [None]
  - SYNCOPE [None]
  - ASPARTATE AMINOTRANSFERASE INCREASED [None]
